FAERS Safety Report 5517744-0 (Version None)
Quarter: 2007Q4

REPORT INFORMATION
  Report Type: 
  Country: None (occurrence: None)
  Receive Date: 20071113
  Receipt Date: 20071106
  Transmission Date: 20080405
  Serious: Yes (Hospitalization)
  Sender: FDA-Public Use
  Company Number: JPI-P-002343

PATIENT
  Age: 55 Year
  Sex: Female

DRUGS (12)
  1. XYREM [Suspect]
     Indication: NARCOLEPSY
     Dosage: 9 GM (4.5 GM, 2 IN 1 D); ORAL, 12 GM (6 GM, 2 IN 1 D), ORAL
     Route: 048
     Dates: start: 20070101, end: 20071021
  2. XYREM [Suspect]
     Indication: NARCOLEPSY
     Dosage: 9 GM (4.5 GM, 2 IN 1 D); ORAL, 12 GM (6 GM, 2 IN 1 D), ORAL
     Route: 048
     Dates: start: 20071022, end: 20071023
  3. CLONIDINE [Concomitant]
  4. EXEMESTANE [Concomitant]
  5. FLUTICASONE PROPIONATE(FLUTICASONE PROPIONATE) (INHALANT) [Concomitant]
  6. HYDROXYZINE [Concomitant]
  7. ROSIGLITAZONE MALEATE AND METFORMIN HYDROCHLORIDE(METFORMIN W/ROSIGLIT [Concomitant]
  8. METHYLPHENIDATE HCL [Concomitant]
  9. PANTOPRAZOLE SODIUM [Concomitant]
  10. RAMELTEON(RAMELTEON) [Concomitant]
  11. TIZANIDINE HCL [Concomitant]
  12. VERAPAMIL [Concomitant]

REACTIONS (14)
  - ASTHENIA [None]
  - DISORIENTATION [None]
  - DIZZINESS [None]
  - DYSARTHRIA [None]
  - DYSURIA [None]
  - FEELING ABNORMAL [None]
  - GASTROOESOPHAGEAL REFLUX DISEASE [None]
  - HYPERSOMNIA [None]
  - INSOMNIA [None]
  - MENTAL STATUS CHANGES [None]
  - MOTOR DYSFUNCTION [None]
  - MOVEMENT DISORDER [None]
  - TREMOR [None]
  - URINARY TRACT INFECTION [None]
